FAERS Safety Report 19134849 (Version 2)
Quarter: 2021Q2

REPORT INFORMATION
  Report Type: Report from Study
  Country: None (occurrence: CA)
  Receive Date: 20210414
  Receipt Date: 20210415
  Transmission Date: 20210717
  Serious: No
  Sender: FDA-Public Use
  Company Number: CA-ABBVIE-21K-028-3858258-00

PATIENT
  Age: 53 Year
  Sex: Male

DRUGS (2)
  1. HUMIRA [Suspect]
     Active Substance: ADALIMUMAB
     Indication: CROHN^S DISEASE
     Route: 058
     Dates: start: 20151030, end: 20210223
  2. HUMIRA [Suspect]
     Active Substance: ADALIMUMAB
     Route: 058
     Dates: start: 20210330

REACTIONS (10)
  - Impaired quality of life [Not Recovered/Not Resolved]
  - Inappropriate schedule of product administration [Unknown]
  - Impaired work ability [Not Recovered/Not Resolved]
  - Abdominal pain [Not Recovered/Not Resolved]
  - Anal fistula [Not Recovered/Not Resolved]
  - Wound complication [Not Recovered/Not Resolved]
  - Wound [Not Recovered/Not Resolved]
  - Gastrointestinal scarring [Unknown]
  - General physical health deterioration [Not Recovered/Not Resolved]
  - Infection [Not Recovered/Not Resolved]

NARRATIVE: CASE EVENT DATE: 202103
